FAERS Safety Report 21486879 (Version 1)
Quarter: 2022Q4

REPORT INFORMATION
  Report Type: Spontaneous
  Country: US (occurrence: None)
  Receive Date: 20221019
  Receipt Date: 20221019
  Transmission Date: 20230112
  Serious: Yes (Hospitalization)
  Sender: FDA-Public Use
  Company Number: None

PATIENT
  Age: 67 Year
  Sex: Male

DRUGS (19)
  1. OPSUMIT [Suspect]
     Active Substance: MACITENTAN
     Indication: Pulmonary arterial hypertension
     Dosage: FREQUENCY : DAILY;?
     Route: 048
     Dates: start: 20171003
  2. SILDENAFIL [Concomitant]
     Active Substance: SILDENAFIL
  3. Insulin NPH Human [Concomitant]
  4. Insulin Regular Human [Concomitant]
  5. INGREZZA [Concomitant]
     Active Substance: VALBENAZINE
  6. DULOXETINE [Concomitant]
     Active Substance: DULOXETINE
  7. traxodone [Concomitant]
  8. METFORMIN [Concomitant]
     Active Substance: METFORMIN HYDROCHLORIDE
  9. ATORVASTATIN [Concomitant]
     Active Substance: ATORVASTATIN
  10. MORPHINE [Concomitant]
     Active Substance: MORPHINE
  11. PERCOCET [Concomitant]
     Active Substance: ACETAMINOPHEN\OXYCODONE HYDROCHLORIDE
  12. NARCAN [Concomitant]
     Active Substance: NALOXONE HYDROCHLORIDE
  13. PRADAXA [Concomitant]
     Active Substance: DABIGATRAN ETEXILATE MESYLATE
  14. PROSCAR [Concomitant]
     Active Substance: FINASTERIDE
  15. PANTOPRAZOLE [Concomitant]
     Active Substance: PANTOPRAZOLE
  16. FLOMEX [Concomitant]
  17. MAGNESIUM CHLORIDE [Concomitant]
     Active Substance: MAGNESIUM CHLORIDE
  18. COLACE [Concomitant]
     Active Substance: DOCUSATE SODIUM
  19. SENOKOT [Concomitant]
     Active Substance: SENNOSIDES

REACTIONS (6)
  - Hypoxia [None]
  - Asthenia [None]
  - Pyrexia [None]
  - Lethargy [None]
  - Accidental overdose [None]
  - Migraine [None]

NARRATIVE: CASE EVENT DATE: 20220817
